FAERS Safety Report 5219802-7 (Version None)
Quarter: 2007Q1

REPORT INFORMATION
  Report Type: 
  Country: None (occurrence: None)
  Receive Date: 20070125
  Receipt Date: 20070122
  Transmission Date: 20070707
  Serious: Yes (Hospitalization)
  Sender: FDA-Public Use
  Company Number: US-ROXANE LABORATORIES, INC-2007-DE-00399GD

PATIENT
  Age: 57 Year
  Sex: Male

DRUGS (4)
  1. PREDNISONE TAB [Suspect]
     Indication: BULLOUS LUNG DISEASE
     Dosage: 20 MG WITH INTERMITTANT INCREASES TO 60 MG
     Route: 048
  2. TIOTROPIUM [Concomitant]
     Indication: BULLOUS LUNG DISEASE
  3. ALBUTEROL [Concomitant]
     Indication: BULLOUS LUNG DISEASE
     Route: 055
  4. FLUTICASONE PROPIONATE [Concomitant]
     Indication: BULLOUS LUNG DISEASE

REACTIONS (3)
  - DRUG INEFFECTIVE [None]
  - DYSPNOEA [None]
  - STAPHYLOCOCCAL INFECTION [None]
